FAERS Safety Report 5788076-0 (Version None)
Quarter: 2008Q2

REPORT INFORMATION
  Report Type: 
  Country: None (occurrence: None)
  Receive Date: 20080625
  Receipt Date: 20080623
  Transmission Date: 20081010
  Serious: Yes (Other)
  Sender: FDA-Public Use
  Company Number: GB-WYE-G01696108

PATIENT
  Sex: Male
  Weight: 89 kg

DRUGS (6)
  1. ENBREL [Suspect]
     Route: 058
     Dates: start: 20070425, end: 20080501
  2. DICLOFENAC SODIUM [Suspect]
     Route: 048
     Dates: start: 20051001
  3. FOLIC ACID [Suspect]
     Route: 048
     Dates: start: 20061013, end: 20080501
  4. OMEPRAZOLE [Suspect]
     Route: 048
     Dates: start: 20070320
  5. METHOTREXATE [Suspect]
     Route: 048
     Dates: start: 20061013, end: 20080501
  6. SULFASALAZINE [Suspect]
     Route: 048
     Dates: start: 20010801, end: 20071001

REACTIONS (1)
  - TONSIL CANCER [None]
